FAERS Safety Report 19018789 (Version 1)
Quarter: 2021Q1

REPORT INFORMATION
  Report Type: Report from Study
  Country: US (occurrence: US)
  Receive Date: 20210317
  Receipt Date: 20210317
  Transmission Date: 20210420
  Serious: Yes (Other)
  Sender: FDA-Public Use
  Company Number: US-PFIZER INC-2021167196

PATIENT
  Age: 74 Year
  Sex: Female

DRUGS (5)
  1. OPSUMIT [Concomitant]
     Active Substance: MACITENTAN
     Dosage: UNK
  2. IRON [Concomitant]
     Active Substance: IRON
     Dosage: UNK
  3. MACITENTAN [Suspect]
     Active Substance: MACITENTAN
     Indication: PULMONARY ARTERIAL HYPERTENSION
     Dosage: 10 MG, 1X/DAY
     Route: 048
     Dates: start: 20170831
  4. LYRICA [Suspect]
     Active Substance: PREGABALIN
     Dosage: UNK
  5. TADALAFIL. [Concomitant]
     Active Substance: TADALAFIL
     Dosage: UNK

REACTIONS (9)
  - Insomnia [Not Recovered/Not Resolved]
  - Cataract [Unknown]
  - Cough [Recovering/Resolving]
  - Urinary tract infection [Unknown]
  - Headache [Unknown]
  - Asthenia [Not Recovered/Not Resolved]
  - Influenza like illness [Recovered/Resolved]
  - Nasal congestion [Recovered/Resolved]
  - Illness [Not Recovered/Not Resolved]
